FAERS Safety Report 4991733-7 (Version None)
Quarter: 2006Q2

REPORT INFORMATION
  Report Type: 
  Country: None (occurrence: None)
  Receive Date: 20060502
  Receipt Date: 20060418
  Transmission Date: 20061013
  Serious: Yes (Life-Threatening)
  Sender: FDA-Public Use
  Company Number: 2006BH008283

PATIENT
  Age: 74 Year

DRUGS (6)
  1. ATIVAN [Suspect]
     Dosage: 5 MG
     Dates: start: 20050325, end: 20050325
  2. DIGOXIN [Suspect]
     Dosage: 1.25 MG
     Dates: start: 20050525, end: 20050525
  3. PANTOLOC (PANTOPRAZOLE, UNSPEC) (NO PREF. NAME) [Suspect]
     Dosage: 200 MG
     Dates: start: 20050325, end: 20050325
  4. EFFEXOR XR [Suspect]
     Dosage: 375 MG
     Dates: start: 20050325, end: 20050525
  5. SEROQUEL [Suspect]
     Dosage: 250 MG
     Dates: start: 20050525, end: 20050525
  6. VASOTEC [Suspect]
     Dosage: 50 MG
     Dates: start: 20050525, end: 20050525

REACTIONS (4)
  - ATRIOVENTRICULAR BLOCK FIRST DEGREE [None]
  - COMA [None]
  - DRUG LEVEL INCREASED [None]
  - INTENTIONAL OVERDOSE [None]
